FAERS Safety Report 5579824-3 (Version None)
Quarter: 2008Q1

REPORT INFORMATION
  Report Type: 
  Country: None (occurrence: None)
  Receive Date: 20080102
  Receipt Date: 20071221
  Transmission Date: 20080703
  Serious: Yes (Other)
  Sender: FDA-Public Use
  Company Number: FR-PFIZER INC-2007086276

PATIENT
  Sex: Male
  Weight: 76.5 kg

DRUGS (3)
  1. CHANTIX [Suspect]
     Indication: SMOKING CESSATION THERAPY
     Dosage: DAILY DOSE:.5MG
     Dates: start: 20070630, end: 20070706
  2. VASTEN [Concomitant]
     Indication: HYPERCHOLESTEROLAEMIA
     Route: 048
  3. VASTEN [Concomitant]
     Indication: HYPERLIPIDAEMIA

REACTIONS (2)
  - ENTEROCOLITIS HAEMORRHAGIC [None]
  - RECTAL HAEMORRHAGE [None]
